FAERS Safety Report 6330386-2 (Version None)
Quarter: 2009Q3

REPORT INFORMATION
  Report Type: 
  Country: None (occurrence: None)
  Receive Date: 20090826
  Receipt Date: 20090826
  Transmission Date: 20100115
  Serious: Yes (Other)
  Sender: FDA-Public Use
  Company Number: None

PATIENT
  Sex: Female
  Weight: 65 kg

DRUGS (7)
  1. ZOLEDRONIC ACID [Suspect]
     Indication: BREAST CANCER METASTATIC
     Dosage: ZOLEDRONIC ACID 4MG MONTHLY INTRAVENOUS
     Route: 042
     Dates: start: 20020812, end: 20090401
  2. AROMASIN [Concomitant]
  3. IBUPROFEN [Concomitant]
  4. LUNESTA [Concomitant]
  5. COZAAR [Concomitant]
  6. CALTRATE WITH VIT. D. [Concomitant]
  7. MULTI-VITAMIN [Concomitant]

REACTIONS (2)
  - JAW DISORDER [None]
  - OSTEONECROSIS [None]
